FAERS Safety Report 25437571 (Version 1)
Quarter: 2025Q2

REPORT INFORMATION
  Report Type: Spontaneous
  Country: MX (occurrence: MX)
  Receive Date: 20250616
  Receipt Date: 20250616
  Transmission Date: 20250716
  Serious: Yes (Hospitalization)
  Sender: NOVO NORDISK
  Company Number: MX-NOVOPROD-1451061

PATIENT
  Age: 15 Month
  Sex: Male
  Weight: 10.4 kg

DRUGS (2)
  1. NOVOEIGHT [Suspect]
     Active Substance: ANTIHEMOPHILIC FACTOR, HUMAN RECOMBINANT
     Indication: Haemophilia
     Dosage: 250 IU, QW
     Route: 042
     Dates: start: 20240218
  2. COAGULATION FACTOR VII HUMAN [Concomitant]
     Active Substance: COAGULATION FACTOR VII HUMAN
     Indication: Product used for unknown indication

REACTIONS (3)
  - Accident [Recovering/Resolving]
  - Gingival bleeding [Recovering/Resolving]
  - Fall [Recovering/Resolving]

NARRATIVE: CASE EVENT DATE: 20250526
